FAERS Safety Report 7385767-5 (Version None)
Quarter: 2011Q1

REPORT INFORMATION
  Report Type: 
  Country: None (occurrence: None)
  Receive Date: 20110331
  Receipt Date: 20100608
  Transmission Date: 20110831
  Serious: Yes (Hospitalization, Other)
  Sender: FDA-Public Use
  Company Number: US-BAYER-200944090NA

PATIENT
  Sex: Female
  Weight: 68.027 kg

DRUGS (5)
  1. YASMIN [Suspect]
     Dosage: UNK
     Dates: start: 20060501, end: 20060801
  2. COUMADIN [Concomitant]
     Dosage: 5 MG, UNK
     Route: 048
  3. YASMIN [Suspect]
     Indication: PREMENSTRUAL SYNDROME
     Dosage: UNK
     Route: 048
     Dates: start: 20060501, end: 20060801
  4. TRAZODONE [Concomitant]
     Indication: SLEEP DISORDER
     Dosage: 50 MG, UNK
     Route: 048
  5. TRAZODONE [Concomitant]
     Indication: ANXIETY

REACTIONS (3)
  - CARDIAC ARREST [None]
  - PULMONARY EMBOLISM [None]
  - PNEUMONIA [None]
